FAERS Safety Report 11858316 (Version 1)
Quarter: 2015Q4

REPORT INFORMATION
  Report Type: Spontaneous
  Country: CA (occurrence: CA)
  Receive Date: 20151222
  Receipt Date: 20151222
  Transmission Date: 20160305
  Serious: Yes (Hospitalization, Other)
  Sender: FDA-Public Use
  Company Number: CA-ACTAVIS-2015-28213

PATIENT
  Age: 69 Year
  Sex: Female

DRUGS (3)
  1. ACITRETIN (UNKNOWN) [Suspect]
     Active Substance: ACITRETIN
     Indication: LICHEN SCLEROSUS
     Dosage: 20 MG, DAILY
     Route: 065
     Dates: start: 20120120
  2. ACITRETIN (UNKNOWN) [Suspect]
     Active Substance: ACITRETIN
     Dosage: 10 MG, DAILY
     Route: 065
     Dates: start: 20120120
  3. PREDNISONE (UNKNOWN) [Suspect]
     Active Substance: PREDNISONE
     Indication: LICHEN SCLEROSUS
     Dosage: 20 MG, DAILY
     Route: 065
     Dates: start: 20120120

REACTIONS (2)
  - Drug-induced liver injury [Recovered/Resolved]
  - Hyperglycaemia [Unknown]
